FAERS Safety Report 5243950-9 (Version None)
Quarter: 2007Q1

REPORT INFORMATION
  Report Type: 
  Country: None (occurrence: None)
  Receive Date: 20070222
  Receipt Date: 20070216
  Transmission Date: 20070707
  Serious: Yes (Other)
  Sender: FDA-Public Use
  Company Number: JP-AVENTIS-200710455JP

PATIENT

DRUGS (2)
  1. LASIX [Suspect]
  2. UNKNOWN DRUG [Concomitant]

REACTIONS (1)
  - DELIRIUM [None]
